FAERS Safety Report 4914237-6 (Version None)
Quarter: 2006Q1

REPORT INFORMATION
  Report Type: 
  Country: None (occurrence: None)
  Receive Date: 20060213
  Receipt Date: 20060127
  Transmission Date: 20060701
  Serious: Yes (Other)
  Sender: FDA-Public Use
  Company Number: 13350

PATIENT
  Age: 10 Year
  Sex: Male

DRUGS (3)
  1. METHOTREXATE [Suspect]
     Indication: ARTHRITIS
     Dosage: 17.5 MG WEEKLY SC
     Route: 058
     Dates: start: 20031127, end: 20050801
  2. METHOTREXATE [Suspect]
     Indication: ARTHRITIS
     Dosage: 22.5 MG WEEKLY SC
     Route: 058
     Dates: start: 20050801
  3. PIROXICAM [Concomitant]

REACTIONS (1)
  - MOUTH ULCERATION [None]
